FAERS Safety Report 20510635 (Version 1)
Quarter: 2022Q1

REPORT INFORMATION
  Report Type: Spontaneous
  Country: CN (occurrence: None)
  Receive Date: 20220224
  Receipt Date: 20220224
  Transmission Date: 20220424
  Serious: Yes (Other)
  Sender: FDA-Public Use
  Company Number: CN-ROCHE-3030874

PATIENT
  Age: 70 Year
  Sex: Female

DRUGS (9)
  1. RITUXIMAB [Suspect]
     Active Substance: RITUXIMAB
     Indication: Diffuse large B-cell lymphoma
     Dosage: RICE
     Route: 065
     Dates: start: 20210911
  2. RITUXIMAB [Suspect]
     Active Substance: RITUXIMAB
     Dosage: R+POLA
     Route: 065
     Dates: start: 20211206
  3. POLATUZUMAB VEDOTIN [Suspect]
     Active Substance: POLATUZUMAB VEDOTIN
     Indication: Diffuse large B-cell lymphoma
     Dosage: R+POLA
     Route: 065
     Dates: start: 20211206
  4. CYCLOPHOSPHAMIDE [Concomitant]
     Active Substance: CYCLOPHOSPHAMIDE
  5. CARBOPLATIN [Concomitant]
     Active Substance: CARBOPLATIN
  6. ETOPOSIDE [Concomitant]
     Active Substance: ETOPOSIDE
  7. DOXORUBICIN [Concomitant]
     Active Substance: DOXORUBICIN
  8. VINCRISTINE [Concomitant]
     Active Substance: VINCRISTINE
  9. PREDNISONE [Concomitant]
     Active Substance: PREDNISONE

REACTIONS (3)
  - Myelosuppression [Recovered/Resolved]
  - Gastrointestinal disorder [Unknown]
  - Asthenia [Unknown]
